FAERS Safety Report 7202743-3 (Version None)
Quarter: 2010Q4

REPORT INFORMATION
  Report Type: 
  Country: None (occurrence: None)
  Receive Date: 20101216
  Receipt Date: 20101208
  Transmission Date: 20110411
  Serious: Yes (Death, Other)
  Sender: FDA-Public Use
  Company Number: 2010JP007259

PATIENT
  Age: 54 Year
  Sex: Male
  Weight: 52.1 kg

DRUGS (5)
  1. FUNGUARD (MICAFUNGIN) INJECTION [Suspect]
     Indication: FUNGAL PERITONITIS
     Dosage: 100 MG
     Dates: start: 20081006
  2. CEFOTAXIME SODIUM [Concomitant]
  3. MEROPENEM [Concomitant]
  4. VANCOMYCIN HYDROCHLORIDE [Concomitant]
  5. PREDNISOLONE [Concomitant]

REACTIONS (7)
  - BLOOD PRESSURE DECREASED [None]
  - CARDIAC FAILURE [None]
  - ENTEROCOLITIS HAEMORRHAGIC [None]
  - GASTROINTESTINAL NECROSIS [None]
  - INTESTINAL ISCHAEMIA [None]
  - KLEBSIELLA INFECTION [None]
  - PORTAL VENOUS GAS [None]
